FAERS Safety Report 6642678-8 (Version None)
Quarter: 2010Q1

REPORT INFORMATION
  Report Type: 
  Country: None (occurrence: None)
  Receive Date: 20100319
  Receipt Date: 20091211
  Transmission Date: 20100710
  Serious: Yes (Other)
  Sender: FDA-Public Use
  Company Number: JP-PFIZER INC-2010032270

PATIENT
  Age: 69 Year
  Sex: Female

DRUGS (1)
  1. SEIBULE [Suspect]
     Dosage: UNK MG, UNK
     Route: 048
     Dates: start: 20070809, end: 20071025

REACTIONS (2)
  - DIZZINESS [None]
  - LIVER DISORDER [None]
